FAERS Safety Report 7659104-2 (Version None)
Quarter: 2011Q3

REPORT INFORMATION
  Report Type: 
  Country: None (occurrence: None)
  Receive Date: 20110805
  Receipt Date: 20110715
  Transmission Date: 20111222
  Serious: Yes (Hospitalization)
  Sender: FDA-Public Use
  Company Number: US-GLAXOSMITHKLINE-A0869585A

PATIENT
  Age: 63 Year
  Sex: Female
  Weight: 99.5 kg

DRUGS (7)
  1. METOPROLOL TARTRATE [Concomitant]
  2. NEXIUM [Concomitant]
  3. ZOCOR [Concomitant]
  4. NEURONTIN [Concomitant]
  5. INSULIN [Concomitant]
  6. GLUCOVANCE [Concomitant]
  7. AVANDIA [Suspect]
     Indication: DIABETES MELLITUS
     Dosage: 2MG TWICE PER DAY
     Route: 048
     Dates: start: 20060822, end: 20070222

REACTIONS (5)
  - CEREBROVASCULAR DISORDER [None]
  - CORONARY ARTERY BYPASS [None]
  - MYOCARDIAL INFARCTION [None]
  - CORONARY ARTERY DISEASE [None]
  - CARDIAC FAILURE CONGESTIVE [None]
